FAERS Safety Report 13820230 (Version 2)
Quarter: 2017Q3

REPORT INFORMATION
  Report Type: Spontaneous
  Country: FR (occurrence: FR)
  Receive Date: 20170801
  Receipt Date: 20170807
  Transmission Date: 20171127
  Serious: Yes (Other)
  Sender: FDA-Public Use
  Company Number: FR-BEH-2017082391

PATIENT
  Age: 32 Year
  Sex: Female

DRUGS (3)
  1. PRIVIGEN [Suspect]
     Active Substance: HUMAN IMMUNOGLOBULIN G
     Indication: MUSCULAR WEAKNESS
     Dosage: 20 G, TOT
     Route: 042
     Dates: start: 20170710
  2. PRIVIGEN [Suspect]
     Active Substance: HUMAN IMMUNOGLOBULIN G
     Dosage: 40 MG, TOT
     Route: 042
     Dates: start: 20170711
  3. PRIVIGEN [Suspect]
     Active Substance: HUMAN IMMUNOGLOBULIN G
     Dosage: UNK
     Route: 042

REACTIONS (9)
  - Photophobia [Recovered/Resolved]
  - Neck pain [Recovered/Resolved]
  - Hyperthermia [Recovered/Resolved]
  - Musculoskeletal stiffness [Recovered/Resolved]
  - Vomiting [Recovered/Resolved]
  - Pyrexia [Recovered/Resolved]
  - Phonophobia [Recovered/Resolved]
  - Meningitis aseptic [Recovered/Resolved]
  - Headache [Recovered/Resolved]

NARRATIVE: CASE EVENT DATE: 20170712
